FAERS Safety Report 16532431 (Version 1)
Quarter: 2019Q3

REPORT INFORMATION
  Report Type: Spontaneous
  Country: US (occurrence: US)
  Receive Date: 20190703
  Receipt Date: 20190703
  Transmission Date: 20191004
  Serious: Yes (Disabling)
  Sender: FDA-Public Use
  Company Number: None

PATIENT
  Age: 52 Year
  Sex: Female
  Weight: 94.5 kg

DRUGS (7)
  1. NAPROXEN. [Concomitant]
     Active Substance: NAPROXEN
  2. FEMARA [Concomitant]
     Active Substance: LETROZOLE
  3. IBUPROFEN. [Concomitant]
     Active Substance: IBUPROFEN
  4. BUPROPION. [Concomitant]
     Active Substance: BUPROPION
  5. LISINOPROL [Concomitant]
     Active Substance: LISINOPRIL
  6. LETROZOLE. [Concomitant]
     Active Substance: LETROZOLE
  7. ZOLEDRONIC ACID. [Suspect]
     Active Substance: ZOLEDRONIC ACID
     Indication: BREAST CANCER
     Dosage: ?          OTHER FREQUENCY:EVERY 6-8 WEEKS;OTHER ROUTE:INFUSION VIA PORTACATH?
     Dates: start: 20090401, end: 20150701

REACTIONS (1)
  - Osteonecrosis of jaw [None]

NARRATIVE: CASE EVENT DATE: 20181001
